FAERS Safety Report 7575374-3 (Version None)
Quarter: 2011Q2

REPORT INFORMATION
  Report Type: 
  Country: None (occurrence: None)
  Receive Date: 20110627
  Receipt Date: 20110614
  Transmission Date: 20111010
  Serious: Yes (Other)
  Sender: FDA-Public Use
  Company Number: US-ELI_LILLY_AND_COMPANY-US201101007176

PATIENT
  Sex: Female

DRUGS (8)
  1. NORCO [Concomitant]
     Dosage: UNK, 6 PILLS
     Route: 065
  2. POTASSIUM [Concomitant]
     Dosage: UNK, BID
     Route: 065
  3. METFORMIN HCL [Concomitant]
     Dosage: UNK, QD
     Route: 065
  4. FORTEO [Suspect]
     Dosage: 20 UG, QD
     Route: 065
  5. FORTEO [Suspect]
     Indication: OSTEOPOROSIS
     Dosage: 20 UG, QD
     Route: 065
  6. MIRAPEX [Concomitant]
     Dosage: UNK, QD
     Route: 065
  7. CLONIDINE [Concomitant]
     Dosage: UNK, QD
     Route: 065
  8. PROTONIX [Concomitant]
     Dosage: UNK, QD
     Route: 065

REACTIONS (17)
  - PRURITUS [None]
  - NAUSEA [None]
  - ARTHRALGIA [None]
  - BLOOD CALCIUM INCREASED [None]
  - SPINAL DISORDER [None]
  - SURGERY [None]
  - WEIGHT BEARING DIFFICULTY [None]
  - BONE PAIN [None]
  - MEMORY IMPAIRMENT [None]
  - FIBROMYALGIA [None]
  - GAIT DISTURBANCE [None]
  - DECREASED APPETITE [None]
  - PAIN [None]
  - ERYTHEMA [None]
  - MUSCULAR WEAKNESS [None]
  - FATIGUE [None]
  - BLISTER [None]
